FAERS Safety Report 13245954 (Version 5)
Quarter: 2018Q2

REPORT INFORMATION
  Report Type: Report from Study
  Country: US (occurrence: US)
  Receive Date: 20170217
  Receipt Date: 20180503
  Transmission Date: 20180711
  Serious: Yes (Other)
  Sender: FDA-Public Use
  Company Number: US-ALEXION PHARMACEUTICALS INC.-A201701412

PATIENT
  Age: 19 Year
  Sex: Female

DRUGS (4)
  1. STRENSIQ [Suspect]
     Active Substance: ASFOTASE ALFA
     Indication: HYPOPHOSPHATASIA
     Dosage: 2 MG/KG, TIW
     Route: 058
     Dates: start: 201611
  2. STRENSIQ [Suspect]
     Active Substance: ASFOTASE ALFA
     Dosage: UNK
     Route: 058
  3. ACCUTANE [Concomitant]
     Active Substance: ISOTRETINOIN
     Indication: ACNE
     Dosage: UNK
     Route: 065
  4. STRENSIQ [Suspect]
     Active Substance: ASFOTASE ALFA
     Dosage: 110 MG, TIW
     Route: 058

REACTIONS (13)
  - Abdominal pain [Unknown]
  - Cataract [Not Recovered/Not Resolved]
  - Nephrolithiasis [Unknown]
  - Neck mass [Not Recovered/Not Resolved]
  - Weight decreased [Unknown]
  - Cyst rupture [Unknown]
  - Rash [Unknown]
  - Ovarian cyst [Unknown]
  - Skin lesion [Not Recovered/Not Resolved]
  - Rheumatoid nodule [Unknown]
  - Folliculitis [Unknown]
  - Acne [Recovering/Resolving]
  - Incorrect dose administered [Unknown]

NARRATIVE: CASE EVENT DATE: 201611
